FAERS Safety Report 14657216 (Version 1)
Quarter: 2018Q1

REPORT INFORMATION
  Report Type: Spontaneous
  Country: GB (occurrence: GB)
  Receive Date: 20180319
  Receipt Date: 20180319
  Transmission Date: 20180509
  Serious: Yes (Hospitalization)
  Sender: FDA-Public Use
  Company Number: GB-PFIZER INC-2018108942

PATIENT
  Age: 72 Year
  Sex: Male

DRUGS (2)
  1. DOXAZOSIN MESILATE [Suspect]
     Active Substance: DOXAZOSIN MESYLATE
     Dosage: 8 MG, DAILY
     Route: 048
  2. OLMESARTAN [Suspect]
     Active Substance: OLMESARTAN
     Dosage: 40 MG, UNK
     Route: 048

REACTIONS (3)
  - Kidney infection [Recovering/Resolving]
  - Hyperkalaemia [Recovered/Resolved]
  - Cellulitis [Unknown]

NARRATIVE: CASE EVENT DATE: 20171126
